FAERS Safety Report 18042089 (Version 1)
Quarter: 2020Q3

REPORT INFORMATION
  Report Type: Report from Study
  Country: US (occurrence: US)
  Receive Date: 20200720
  Receipt Date: 20200720
  Transmission Date: 20201103
  Serious: Yes (Other)
  Sender: FDA-Public Use
  Company Number: US-TEVA-2020-US-1802816

PATIENT
  Age: 69 Year
  Sex: Female

DRUGS (3)
  1. MANNITOL. [Suspect]
     Active Substance: MANNITOL
     Indication: DRUG THERAPY
     Dosage: INTRA?ARTERIAL HYPERTONIC INFUSION
     Route: 013
  2. METHOTREXATE. [Suspect]
     Active Substance: METHOTREXATE
     Indication: CENTRAL NERVOUS SYSTEM LYMPHOMA
     Route: 013
  3. METHOTREXATE. [Suspect]
     Active Substance: METHOTREXATE
     Indication: DIFFUSE LARGE B-CELL LYMPHOMA

REACTIONS (1)
  - Maculopathy [Unknown]
